FAERS Safety Report 19211742 (Version 1)
Quarter: 2021Q2

REPORT INFORMATION
  Report Type: Spontaneous
  Country: US (occurrence: US)
  Receive Date: 20210504
  Receipt Date: 20210504
  Transmission Date: 20210717
  Serious: Yes (Hospitalization)
  Sender: FDA-Public Use
  Company Number: US-MYLANLABS-2021M1025968

PATIENT
  Age: 17 Month
  Sex: Male

DRUGS (14)
  1. OMEPRAZOLE. [Suspect]
     Active Substance: OMEPRAZOLE
     Indication: EOSINOPHILIC OESOPHAGITIS
     Dosage: UNK
     Route: 065
  2. IBUPROFEN. [Concomitant]
     Active Substance: IBUPROFEN
     Indication: SYMPTOMATIC TREATMENT
     Dosage: 100 MILLIGRAM
     Route: 048
  3. ACETYLCYSTEINE. [Suspect]
     Active Substance: ACETYLCYSTEINE
     Indication: TRAUMATIC LUNG INJURY
  4. ACETAMINOPHEN. [Concomitant]
     Active Substance: ACETAMINOPHEN
     Indication: SYMPTOMATIC TREATMENT
     Dosage: 15 MILLIGRAM/KILOGRAM
     Route: 065
  5. VANCOMYCIN [Concomitant]
     Active Substance: VANCOMYCIN
     Indication: SYMPTOMATIC TREATMENT
     Dosage: UNK
     Route: 042
  6. DEXAMETHASONE. [Suspect]
     Active Substance: DEXAMETHASONE
     Indication: TRAUMATIC LUNG INJURY
  7. SALBUTAMOL [Suspect]
     Active Substance: ALBUTEROL
     Indication: PNEUMONIA ASPIRATION
     Dosage: 2 UNK TWO PUFFS OF SALBUTAMOL METERED?DOSE INHALER (MDI) WITH SPACER
  8. DEXAMETHASONE. [Suspect]
     Active Substance: DEXAMETHASONE
     Indication: PNEUMONIA ASPIRATION
     Dosage: 8 MILLIGRAM
     Route: 042
  9. IPRATROPIUM/SALBUTAMOL [Suspect]
     Active Substance: ALBUTEROL\IPRATROPIUM BROMIDE
     Indication: PNEUMONIA ASPIRATION
     Dosage: THREE NEBULISED DOSES
     Route: 055
  10. IPRATROPIUM/SALBUTAMOL [Suspect]
     Active Substance: ALBUTEROL\IPRATROPIUM BROMIDE
     Indication: TRAUMATIC LUNG INJURY
  11. SALBUTAMOL [Suspect]
     Active Substance: ALBUTEROL
     Indication: TRAUMATIC LUNG INJURY
  12. CEFTRIAXONE. [Concomitant]
     Active Substance: CEFTRIAXONE
     Indication: SYMPTOMATIC TREATMENT
     Dosage: 50 MILLIGRAM/KILOGRAM
     Route: 042
  13. ACETYLCYSTEINE. [Suspect]
     Active Substance: ACETYLCYSTEINE
     Indication: PNEUMONIA ASPIRATION
     Dosage: RESPIRATORY (INHALATION)
  14. NORMAL SALINE [Concomitant]
     Active Substance: SODIUM CHLORIDE
     Indication: SYMPTOMATIC TREATMENT
     Dosage: TWO IV BOLUSES OF 20 ML/KG
     Route: 040

REACTIONS (2)
  - Drug ineffective [Unknown]
  - Off label use [Unknown]
